FAERS Safety Report 19855265 (Version 1)
Quarter: 2021Q3

REPORT INFORMATION
  Report Type: Spontaneous
  Country: US (occurrence: US)
  Receive Date: 20210916
  Receipt Date: 20210916
  Transmission Date: 20211014
  Serious: Yes (Hospitalization)
  Sender: FDA-Public Use
  Company Number: None

PATIENT
  Age: 35 Year
  Sex: Female

DRUGS (9)
  1. HUMIRA [Suspect]
     Active Substance: ADALIMUMAB
     Indication: RHEUMATOID ARTHRITIS
     Route: 058
     Dates: start: 20210306
  2. GABAPENTIN. [Concomitant]
     Active Substance: GABAPENTIN
  3. METHOTREXATE. [Concomitant]
     Active Substance: METHOTREXATE
  4. ISIBLOOM [Concomitant]
     Active Substance: DESOGESTREL\ETHINYL ESTRADIOL
  5. CYCLOBENZAPRINE. [Concomitant]
     Active Substance: CYCLOBENZAPRINE
  6. BUPENORPHIN [Concomitant]
  7. ONDANSETRON [Concomitant]
     Active Substance: ONDANSETRON
  8. FOLIC ACID. [Concomitant]
     Active Substance: FOLIC ACID
  9. LISINOPIRL [Concomitant]

REACTIONS (2)
  - Blood pressure decreased [None]
  - Product dose omission issue [None]
